FAERS Safety Report 4881397-5 (Version None)
Quarter: 2005Q4

REPORT INFORMATION
  Report Type: 
  Country: None (occurrence: None)
  Receive Date: 20051212
  Receipt Date: 20051028
  Transmission Date: 20060501
  Serious: No
  Sender: FDA-Public Use
  Company Number: 2005-02257

PATIENT
  Age: 74 Year
  Sex: Male
  Weight: 59 kg

DRUGS (5)
  1. VELCADE [Suspect]
     Indication: MULTIPLE MYELOMA
     Dosage: 2.00 MG , IV BOLUS
     Route: 040
  2. DIGOXIN [Concomitant]
  3. DEXAMETHASONE TAB [Concomitant]
  4. SOFRAN (ONDANSETRON HYDROCHLORIDE) [Concomitant]
  5. ANTI-DIABETICS [Concomitant]

REACTIONS (1)
  - INJECTION SITE ERYTHEMA [None]
